FAERS Safety Report 5712275-7 (Version None)
Quarter: 2008Q2

REPORT INFORMATION
  Report Type: 
  Country: None (occurrence: None)
  Receive Date: 20080421
  Receipt Date: 20080421
  Transmission Date: 20081010
  Serious: Yes (Other)
  Sender: FDA-Public Use
  Company Number: None

PATIENT
  Age: 4 Year
  Sex: Male
  Weight: 13.6079 kg

DRUGS (2)
  1. SINGULAIR [Suspect]
     Indication: ASTHMA
     Dosage: 2X DAILY
     Dates: start: 20030901, end: 20050901
  2. SINGULAIR [Suspect]
     Indication: MULTIPLE ALLERGIES
     Dosage: 2X DAILY
     Dates: start: 20030901, end: 20050901

REACTIONS (4)
  - ABNORMAL BEHAVIOUR [None]
  - ANGER [None]
  - ATTENTION DEFICIT/HYPERACTIVITY DISORDER [None]
  - PSYCHOMOTOR HYPERACTIVITY [None]
